FAERS Safety Report 19966082 (Version 1)
Quarter: 2021Q4

REPORT INFORMATION
  Report Type: Spontaneous
  Country: UY (occurrence: UY)
  Receive Date: 20211018
  Receipt Date: 20211018
  Transmission Date: 20220303
  Serious: Yes (Death)
  Sender: FDA-Public Use
  Company Number: UY-PFIZER INC-202101324072

PATIENT
  Age: 60 Year
  Sex: Female

DRUGS (2)
  1. IBRANCE [Suspect]
     Active Substance: PALBOCICLIB
     Indication: Breast cancer metastatic
     Dosage: 125 MG, CYCLIC, SCHEME 3X1
     Dates: start: 20191213
  2. FULVESTRANT [Concomitant]
     Active Substance: FULVESTRANT

REACTIONS (1)
  - Cardio-respiratory arrest [Fatal]
